FAERS Safety Report 10506611 (Version 1)
Quarter: 2014Q4

REPORT INFORMATION
  Report Type: Spontaneous
  Country: US (occurrence: US)
  Receive Date: 20141009
  Receipt Date: 20141009
  Transmission Date: 20150528
  Serious: Yes (Other)
  Sender: FDA-Public Use
  Company Number: US-ROCHE-1470899

PATIENT
  Sex: Male

DRUGS (6)
  1. ALEVE [Concomitant]
     Active Substance: NAPROXEN SODIUM
  2. NAPROSYN [Suspect]
     Active Substance: NAPROXEN
     Route: 065
     Dates: start: 20080816, end: 20081120
  3. NAPROSYN [Suspect]
     Active Substance: NAPROXEN
     Route: 065
     Dates: start: 200906, end: 201312
  4. NAPROSYN [Suspect]
     Active Substance: NAPROXEN
     Indication: BACK PAIN
     Route: 065
     Dates: start: 20070217, end: 20070617
  5. NAPROSYN [Suspect]
     Active Substance: NAPROXEN
     Route: 065
     Dates: start: 20071217, end: 20080416
  6. NAPROSYN [Suspect]
     Active Substance: NAPROXEN
     Route: 065
     Dates: start: 20140504

REACTIONS (2)
  - Headache [Unknown]
  - Stress [Unknown]

NARRATIVE: CASE EVENT DATE: 20070217
